FAERS Safety Report 9057656 (Version 1)
Quarter: 2013Q1

REPORT INFORMATION
  Report Type: Spontaneous
  Country: TR (occurrence: TR)
  Receive Date: 20130204
  Receipt Date: 20130204
  Transmission Date: 20140127
  Serious: Yes (Other)
  Sender: FDA-Public Use
  Company Number: TR-PFIZER INC-2013023886

PATIENT
  Age: 42 Year
  Sex: Male

DRUGS (1)
  1. CHAMPIX [Suspect]
     Indication: SMOKING CESSATION THERAPY
     Dosage: UNK

REACTIONS (6)
  - Myocardial infarction [Unknown]
  - Pain [Recovered/Resolved]
  - Sweat gland disorder [Unknown]
  - Melanocytic naevus [Unknown]
  - Nervousness [Unknown]
  - Tearfulness [Unknown]
